FAERS Safety Report 6520433-7 (Version None)
Quarter: 2009Q4

REPORT INFORMATION
  Report Type: 
  Country: None (occurrence: None)
  Receive Date: 20091229
  Receipt Date: 20091224
  Transmission Date: 20100525
  Serious: Yes (Death, Other)
  Sender: FDA-Public Use
  Company Number: PHHY2009CA57542

PATIENT
  Sex: Female

DRUGS (1)
  1. CLOZARIL [Suspect]
     Indication: SCHIZOPHRENIA
     Dosage: UNK
     Dates: start: 19960111, end: 20090701

REACTIONS (3)
  - DEMYELINATING POLYNEUROPATHY [None]
  - ELECTROLYTE IMBALANCE [None]
  - RESPIRATORY FAILURE [None]
